FAERS Safety Report 9692852 (Version 1)
Quarter: 2013Q4

REPORT INFORMATION
  Report Type: Spontaneous
  Country: US (occurrence: None)
  Receive Date: 20131115
  Receipt Date: 20131115
  Transmission Date: 20140711
  Serious: Yes (Death)
  Sender: FDA-Public Use
  Company Number: None

PATIENT
  Age: 36 Year
  Sex: Male
  Weight: 82.1 kg

DRUGS (2)
  1. LAMOTRIGINE [Suspect]
     Indication: MOOD SWINGS
     Dosage: 1 TAB
     Route: 048
     Dates: start: 20131101
  2. LORAZEPAM [Concomitant]

REACTIONS (1)
  - Completed suicide [None]
